FAERS Safety Report 9613597 (Version 1)
Quarter: 2013Q4

REPORT INFORMATION
  Report Type: Spontaneous
  Country: IT (occurrence: None)
  Receive Date: 20131008
  Receipt Date: 20131008
  Transmission Date: 20140711
  Serious: No
  Sender: FDA-Public Use
  Company Number: B0927344A

PATIENT
  Sex: 0

DRUGS (2)
  1. MELPHALAN (FORMULATION UNKNOWN) (GENERIC) (MELPHALAN) [Suspect]
     Indication: RETINOBLASTOMA
     Route: 013
  2. TOPOTECAN HYDROCHLORIDE [Suspect]
     Indication: RETINOBLASTOMA
     Route: 013

REACTIONS (1)
  - Febrile neutropenia [None]
